FAERS Safety Report 6638510-9 (Version None)
Quarter: 2010Q1

REPORT INFORMATION
  Report Type: 
  Country: None (occurrence: None)
  Receive Date: 20100317
  Receipt Date: 20100304
  Transmission Date: 20100710
  Serious: Yes (Other)
  Sender: FDA-Public Use
  Company Number: US-ELI_LILLY_AND_COMPANY-US201003002014

PATIENT
  Sex: Male

DRUGS (5)
  1. HUMATROPE [Suspect]
     Dosage: UNK, UNK
     Dates: start: 19990101, end: 20100101
  2. TESTOSTERONE [Concomitant]
  3. THYROID TAB [Concomitant]
  4. ALBUTEROL [Concomitant]
  5. QVAR 40 [Concomitant]

REACTIONS (8)
  - ANGINA PECTORIS [None]
  - ARTHRALGIA [None]
  - DISEASE RECURRENCE [None]
  - FATIGUE [None]
  - HEADACHE [None]
  - MALAISE [None]
  - MONOPLEGIA [None]
  - MUSCULAR WEAKNESS [None]
